FAERS Safety Report 15301296 (Version 1)
Quarter: 2018Q3

REPORT INFORMATION
  Report Type: Spontaneous
  Country: US (occurrence: US)
  Receive Date: 20180821
  Receipt Date: 20180821
  Transmission Date: 20181010
  Serious: No
  Sender: FDA-Public Use
  Company Number: US-MALLINCKRODT-T201802159

PATIENT
  Age: 65 Year
  Sex: Female
  Weight: 45 kg

DRUGS (1)
  1. OXYCODONE/ACETAMINOPHEN [Suspect]
     Active Substance: ACETAMINOPHEN\OXYCODONE HYDROCHLORIDE
     Indication: BACK PAIN
     Dosage: 10/325 MG, 4 TIMES DAILY AS NEEDED
     Route: 048
     Dates: start: 20180506

REACTIONS (6)
  - Loss of personal independence in daily activities [Unknown]
  - Sleep disorder [Unknown]
  - Confusional state [Unknown]
  - Fatigue [Unknown]
  - Heart rate increased [Unknown]
  - Headache [Unknown]
